FAERS Safety Report 4772538-9 (Version None)
Quarter: 2005Q3

REPORT INFORMATION
  Report Type: 
  Country: None (occurrence: None)
  Receive Date: 20050915
  Receipt Date: 20050915
  Transmission Date: 20060218
  Serious: Yes (Death)
  Sender: FDA-Public Use
  Company Number: None

PATIENT
  Age: 78 Year
  Sex: Male
  Weight: 88.4514 kg

DRUGS (1)
  1. AMIODARONE   200 MG [Suspect]
     Indication: ATRIAL FIBRILLATION
     Dosage: ONE   PER DAY   PO
     Route: 048
     Dates: start: 20010914, end: 20050807

REACTIONS (8)
  - ATRIAL FIBRILLATION [None]
  - CONDITION AGGRAVATED [None]
  - DRUG EFFECT DECREASED [None]
  - DRUG TOXICITY [None]
  - MULTI-ORGAN FAILURE [None]
  - OFF LABEL USE [None]
  - PULMONARY FIBROSIS [None]
  - STAPHYLOCOCCAL INFECTION [None]
